FAERS Safety Report 8613827 (Version 3)
Quarter: 2014Q1

REPORT INFORMATION
  Report Type: Spontaneous
  Country: US (occurrence: None)
  Receive Date: 20120323
  Receipt Date: 20130305
  Transmission Date: 20141002
  Serious: Yes (Hospitalization, Other)
  Sender: FDA-Public Use
  Company Number: 163-21880-11123196

PATIENT
  Age: 68 Year
  Sex: Male
  Weight: 220 kg

DRUGS (7)
  1. REVLIMID [Suspect]
     Indication: PLASMA CELL MYELOMA
     Dosage: 25 MG, DAILY, PO
     Route: 048
     Dates: start: 201001, end: 20111222
  2. SIMVASTATIN [Concomitant]
  3. DIOVAN [Concomitant]
  4. BABY ASPIRIN (ACETYLSALICYLIC ACID)(UNKNOWN) [Concomitant]
  5. CALCIUM (CALCIUM)(UNKNOWN) [Concomitant]
  6. MV (MV) (UNKNOWN) [Concomitant]
  7. K SUPPLEMENT (POTASSIUM)(UNKNOWN [Concomitant]

REACTIONS (1)
  - Interstitial lung disease [None]
